FAERS Safety Report 23364789 (Version 2)
Quarter: 2024Q1

REPORT INFORMATION
  Report Type: Spontaneous
  Country: JP (occurrence: JP)
  Receive Date: 20240104
  Receipt Date: 20240126
  Transmission Date: 20240409
  Serious: Yes (Death, Other)
  Sender: FDA-Public Use
  Company Number: JP-UCBSA-2023061553

PATIENT
  Age: 79 Year
  Sex: Female

DRUGS (4)
  1. VIMPAT [Suspect]
     Active Substance: LACOSAMIDE
     Indication: Temporal lobe epilepsy
     Dosage: 50 MILLIGRAM, 2X/DAY (BID) (12 HOURS)
     Route: 048
  2. VIMPAT [Suspect]
     Active Substance: LACOSAMIDE
     Indication: Partial seizures with secondary generalisation
     Dosage: 100 MILLIGRAM, 2X/DAY (BID) (12 HOURS)
     Route: 048
  3. VALPROATE SODIUM [Concomitant]
     Active Substance: VALPROATE SODIUM
     Indication: Product used for unknown indication
     Dosage: 300 MILLIGRAM PER DAY
     Route: 048
  4. TOPIRAMATE [Concomitant]
     Active Substance: TOPIRAMATE
     Indication: Product used for unknown indication
     Dosage: 150 MILLIGRAM PER DAY
     Route: 048

REACTIONS (2)
  - Death [Fatal]
  - Arrhythmia [Recovered/Resolved]
